FAERS Safety Report 8041868-X (Version None)
Quarter: 2012Q1

REPORT INFORMATION
  Report Type: 
  Country: None (occurrence: None)
  Receive Date: 20120112
  Receipt Date: 20111228
  Transmission Date: 20120608
  Serious: Yes (Death)
  Sender: FDA-Public Use
  Company Number: US-UCBSA-049301

PATIENT
  Age: 26 Year
  Sex: Male

DRUGS (4)
  1. THC HOMOLOG [Suspect]
     Route: 048
  2. HEROIN [Suspect]
     Route: 048
  3. AMITRIPTYLINE HCL [Concomitant]
     Dosage: 2 DOSES
  4. ALPRAZOLAM [Suspect]
     Route: 048

REACTIONS (1)
  - DRUG ABUSE [None]
